FAERS Safety Report 22385797 (Version 1)
Quarter: 2023Q2

REPORT INFORMATION
  Report Type: Spontaneous
  Country: US (occurrence: US)
  Receive Date: 20230530
  Receipt Date: 20230530
  Transmission Date: 20230722
  Serious: Yes (Hospitalization, Congenital Anomaly, Other)
  Sender: FDA-Public Use
  Company Number: US-GLAXOSMITHKLINE-US2023GSK072695

PATIENT

DRUGS (1)
  1. VALACYCLOVIR HYDROCHLORIDE [Suspect]
     Active Substance: VALACYCLOVIR HYDROCHLORIDE
     Indication: Product used for unknown indication
     Dosage: UNK
     Route: 064

REACTIONS (18)
  - Disease recurrence [Unknown]
  - Microcephaly [Unknown]
  - Rash erythematous [Unknown]
  - Papule [Unknown]
  - Pustule [Unknown]
  - Blister [Unknown]
  - Rash vesicular [Unknown]
  - Amniotic cavity infection [Unknown]
  - Retinal haemorrhage [Unknown]
  - Necrosis [Unknown]
  - Chorioretinitis [Unknown]
  - Encephalomalacia [Unknown]
  - Neurodevelopmental disorder [Unknown]
  - Hypoacusis [Unknown]
  - Herpes simplex virus conjunctivitis neonatal [Unknown]
  - Necrotising retinitis [Unknown]
  - Premature baby [Unknown]
  - Foetal exposure during pregnancy [Unknown]
